FAERS Safety Report 7541823-X (Version None)
Quarter: 2011Q2

REPORT INFORMATION
  Report Type: 
  Country: None (occurrence: None)
  Receive Date: 20110613
  Receipt Date: 20110601
  Transmission Date: 20111010
  Serious: Yes (Hospitalization)
  Sender: FDA-Public Use
  Company Number: DK-NOVOPROD-325582

PATIENT
  Age: 60 Year
  Sex: Female
  Weight: 74 kg

DRUGS (18)
  1. LEVOTHYROXINE SODIUM [Concomitant]
  2. ATORVASTATIN CALCIUM [Concomitant]
  3. FERROUS SULFATE TAB [Concomitant]
  4. LEVEMIR [Suspect]
     Dosage: 4 IU, QD
     Route: 058
  5. LEVEMIR [Suspect]
     Dosage: 5 IU, QD INJECTION IN THE THIGH ABOUT 18.00 EVERY DAY
     Route: 058
     Dates: start: 20110307
  6. SPIRONOLACTONE [Concomitant]
  7. D VITAMIINI [Concomitant]
  8. LEVEMIR [Suspect]
     Indication: TYPE 2 DIABETES MELLITUS
     Dosage: 6 IU, QD
     Route: 058
  9. LOSARTAN POTASSIUM [Concomitant]
  10. GABAPENTIN [Concomitant]
  11. POTASSIUM CHLORIDE [Concomitant]
  12. PANTOPRAZOLE [Concomitant]
  13. EZETIMIBE [Concomitant]
  14. WARFARIN SODIUM [Concomitant]
  15. DIGOXIN [Concomitant]
  16. ACETAMINOPHEN [Concomitant]
  17. CALCIUM CARBONATE [Concomitant]
  18. FUROSEMIDE [Concomitant]

REACTIONS (5)
  - SHOCK HYPOGLYCAEMIC [None]
  - TRANSIENT ISCHAEMIC ATTACK [None]
  - DIZZINESS [None]
  - VISUAL IMPAIRMENT [None]
  - FEELING COLD [None]
